FAERS Safety Report 6693336-5 (Version None)
Quarter: 2010Q2

REPORT INFORMATION
  Report Type: 
  Country: None (occurrence: None)
  Receive Date: 20100420
  Receipt Date: 20100402
  Transmission Date: 20101027
  Serious: Yes (Other)
  Sender: FDA-Public Use
  Company Number: 7000935

PATIENT
  Age: 56 Year
  Sex: Female
  Weight: 72 kg

DRUGS (6)
  1. REBIF [Suspect]
     Indication: MULTIPLE SCLEROSIS
     Dosage: 44 MCG, 3 IN 1 WK, SUBCUTANEOUS
     Route: 058
     Dates: start: 20070319
  2. LISINOPRIL [Concomitant]
  3. PAROXETINE HCL [Concomitant]
  4. CALCIUM WITH VITAMIN D (LEKVIT CA) [Concomitant]
  5. UNSPECIFIED NASAL SPRAY (ALL OTHER THERAPEUTIC PRODUCTS) [Concomitant]
  6. UNSPECIFIED ALLERGY MEDICATION (ALLERGY MEDICATION) [Concomitant]

REACTIONS (3)
  - DIABETES MELLITUS [None]
  - INJECTION SITE PAIN [None]
  - INSOMNIA [None]
